FAERS Safety Report 6993843-1 (Version None)
Quarter: 2010Q3

REPORT INFORMATION
  Report Type: 
  Country: None (occurrence: None)
  Receive Date: 20100917
  Receipt Date: 20070329
  Transmission Date: 20110219
  Serious: Yes (Other)
  Sender: FDA-Public Use
  Company Number: US-ASTRAZENECA-2006UW07078

PATIENT
  Age: 45 Year
  Sex: Male
  Weight: 96.6 kg

DRUGS (11)
  1. SEROQUEL [Suspect]
     Indication: SCHIZOPHRENIA
     Dosage: 600-800 MG
     Route: 048
     Dates: start: 19980101
  2. SEROQUEL [Suspect]
     Dosage: 100 MG IN THE MORNING AND 200 MG AT NIGHT
     Route: 048
     Dates: start: 19981110
  3. ZYPREXA [Suspect]
     Dates: start: 20060101
  4. THORAZINE [Suspect]
     Route: 065
     Dates: start: 20050101
  5. SERENTIL [Concomitant]
     Route: 048
     Dates: start: 19970617
  6. BUSPAR [Concomitant]
     Route: 048
     Dates: start: 19970617
  7. VISTARIL [Concomitant]
     Route: 048
     Dates: start: 19970617
  8. EFFEXOR [Concomitant]
     Route: 048
     Dates: start: 19970617
  9. ZYRTEC [Concomitant]
     Dates: start: 20050523
  10. GLYBURIDE [Concomitant]
     Dates: start: 20050523
  11. LIPITOR [Concomitant]
     Dates: start: 20050523

REACTIONS (5)
  - BLOOD CHOLESTEROL INCREASED [None]
  - DEPRESSION [None]
  - DIABETES MELLITUS [None]
  - HYPERLIPIDAEMIA [None]
  - TYPE 2 DIABETES MELLITUS [None]
